FAERS Safety Report 8459933-1 (Version None)
Quarter: 2012Q2

REPORT INFORMATION
  Report Type: 
  Country: None (occurrence: None)
  Receive Date: 20120622
  Receipt Date: 20120619
  Transmission Date: 20120825
  Serious: Yes (Other)
  Sender: FDA-Public Use
  Company Number: PHEH2012US012176

PATIENT
  Sex: Female

DRUGS (21)
  1. VITAMIN D [Concomitant]
  2. MULTIVITAMINS, OTHER COMBINATIONS [Concomitant]
  3. DEXILANT [Concomitant]
  4. VENTILAN [Concomitant]
  5. ALBUTEROL [Concomitant]
  6. XANAX [Concomitant]
  7. NORCO [Concomitant]
  8. POTASSIUM CHLORIDE [Concomitant]
  9. IMITREX ^GLAXO^ [Concomitant]
  10. MAGNESIUM [Concomitant]
  11. BRIMONIDINE TARTRATE [Concomitant]
  12. FIORICET [Concomitant]
  13. EPIPEN [Concomitant]
  14. ZOFRAN [Concomitant]
  15. RESTASIS [Concomitant]
  16. VIVELLE-DOT [Suspect]
     Dosage: 0.1 UKN, BIW
     Route: 062
  17. ZANAFLEX [Concomitant]
  18. ASCORBIC ACID [Concomitant]
  19. MULTAQ [Concomitant]
  20. VITAMIN E [Concomitant]
  21. LYDEXCIUM [Concomitant]

REACTIONS (4)
  - URINE CALCIUM INCREASED [None]
  - GLAUCOMA [None]
  - ERYTHEMA [None]
  - PRURITUS [None]
